FAERS Safety Report 25626927 (Version 1)
Quarter: 2025Q3

REPORT INFORMATION
  Report Type: Spontaneous
  Country: IN (occurrence: IN)
  Receive Date: 20250731
  Receipt Date: 20250731
  Transmission Date: 20251021
  Serious: Yes (Other)
  Sender: BRISTOL-MYERS SQUIBB COMPANY
  Company Number: IN-BRISTOL-MYERS SQUIBB COMPANY-2025-104019

PATIENT
  Age: 52 Year
  Sex: Male

DRUGS (3)
  1. DASATINIB [Suspect]
     Active Substance: DASATINIB
     Indication: B-cell type acute leukaemia
  2. VINCRISTINE [Suspect]
     Active Substance: VINCRISTINE
     Indication: B-cell type acute leukaemia
  3. DAUNORUBICIN [Concomitant]
     Active Substance: DAUNORUBICIN
     Indication: B-cell type acute leukaemia

REACTIONS (3)
  - Bone marrow necrosis [Unknown]
  - Escherichia infection [Unknown]
  - Acinetobacter infection [Unknown]
